FAERS Safety Report 7779881-X (Version None)
Quarter: 2011Q3

REPORT INFORMATION
  Report Type: 
  Country: None (occurrence: None)
  Receive Date: 20110927
  Receipt Date: 20110916
  Transmission Date: 20111222
  Serious: Yes (Hospitalization)
  Sender: FDA-Public Use
  Company Number: IT-MPIJNJ-2011-01026

PATIENT

DRUGS (7)
  1. DEXAMETHASONE [Suspect]
     Indication: MYELOMA RECURRENCE
     Dosage: 40 MG, CYCLIC
     Route: 048
     Dates: start: 20101227, end: 20110124
  2. ESOMEPRAZOLE SODIUM [Concomitant]
     Dosage: 20 MG, UNK
     Route: 048
     Dates: start: 20101227, end: 20110124
  3. ACYCLOVIR [Concomitant]
     Indication: ANTIVIRAL PROPHYLAXIS
     Dosage: 800 MG, BID
     Route: 048
     Dates: start: 20101227
  4. PAMIDRONATE DISODIUM [Concomitant]
     Indication: PROPHYLAXIS
     Dosage: 90 MG, UNK
     Route: 048
     Dates: start: 20101006
  5. VELCADE [Suspect]
     Indication: MYELOMA RECURRENCE
     Dosage: 2.5 MG, CYCLIC
     Route: 042
     Dates: start: 20101227, end: 20110124
  6. PENTACARINAT [Concomitant]
     Indication: PROPHYLAXIS
     Dosage: 1 UNK, UNK
     Route: 048
     Dates: start: 20101227
  7. FLUCONAZOLE [Concomitant]
     Indication: ANTIFUNGAL PROPHYLAXIS
     Dosage: 400 MG, UNK
     Route: 048
     Dates: start: 20101227

REACTIONS (4)
  - H1N1 INFLUENZA [None]
  - PNEUMONIA [None]
  - THROMBOCYTOPENIA [None]
  - SEPSIS [None]
